FAERS Safety Report 5152417-8 (Version None)
Quarter: 2006Q4

REPORT INFORMATION
  Report Type: 
  Country: None (occurrence: None)
  Receive Date: 20061116
  Receipt Date: 20060825
  Transmission Date: 20070319
  Serious: Yes (Death, Hospitalization)
  Sender: FDA-Public Use
  Company Number: US-ELI_LILLY_AND_COMPANY-US200608005540

PATIENT
  Age: 48 Year
  Sex: Male
  Weight: 72.108 kg

DRUGS (1)
  1. ZYPREXA [Suspect]
     Indication: SCHIZOPHRENIA
     Dosage: 5 MG, UNK
     Dates: start: 19900101, end: 20050101

REACTIONS (3)
  - CONVULSION [None]
  - DEATH [None]
  - DIABETES MELLITUS [None]
